FAERS Safety Report 7615726-6 (Version None)
Quarter: 2011Q3

REPORT INFORMATION
  Report Type: 
  Country: None (occurrence: None)
  Receive Date: 20110711
  Receipt Date: 20110628
  Transmission Date: 20111222
  Serious: Yes (Hospitalization)
  Sender: FDA-Public Use
  Company Number: 2011HGS-002370

PATIENT
  Sex: Female
  Weight: 77.1115 kg

DRUGS (19)
  1. BENLYSTA [Suspect]
     Indication: SYSTEMIC LUPUS ERYTHEMATOSUS
     Dosage: 10 MG/KG, 1 IN 14 D, INTRAVENOUS DRIP
     Route: 041
     Dates: start: 20110602
  2. PLAQUENIL (HYDROXYCHLOROQUINE SULFATE)(HYDROXYCHLOROQUINE SULFATE) [Concomitant]
  3. OMEPRAZOLE [Concomitant]
  4. NIFEDIPINE ER (NIFEDIPINE)(NIFEDIPINE) [Concomitant]
  5. SAVELLA [Concomitant]
  6. TOPROL-XL [Concomitant]
  7. ARAVA (LEFLUNOMIDE)(LEFLUNOMIDE) [Concomitant]
  8. CRESTOR (ROSUVASTATTN CALCTTTMI (RORTTVASTATTN CALCIUM) [Concomitant]
  9. BENTYL (DICYCLOVERINE HYDROCHLORIDE) (DICYCLOVERINE HYDROCHLORIDE) [Concomitant]
  10. VICODIN (VICODIN)(PARACETAMOL, HYDROCODONE BITARTRATE) [Concomitant]
  11. NEURONTIN [Concomitant]
  12. LISINOPRIL [Concomitant]
  13. CALTRATE D (LEKOVIT CA)(COLECALCIFEROL, CALCIUM CARBONATE) [Concomitant]
  14. REGLAN (METOCLOPRAMIDE HYDROCHLORIDE)(METOCLOPRAMIDE HYDROCHLORIDE) [Concomitant]
  15. LEVOTHYROXINE(LEVOTHYROXINE) (LEVOTHYROXINE) [Concomitant]
  16. LASIX(LASIX /SCH/)(FUROSEMIDE, FUROSEMIDE SODIUM) [Concomitant]
  17. PREDNISONE [Concomitant]
  18. PROVIGIL [Concomitant]
  19. VALTREX (VALACICLOVIR HYDROCHLORIDE) (VALACICLOVIR HYDROCHLORIDE) [Concomitant]

REACTIONS (11)
  - ABDOMINAL DISCOMFORT [None]
  - DIARRHOEA [None]
  - VIRAL INFECTION [None]
  - FLUID INTAKE REDUCED [None]
  - CONDITION AGGRAVATED [None]
  - FATIGUE [None]
  - DECREASED APPETITE [None]
  - SYSTEMIC LUPUS ERYTHEMATOSUS [None]
  - NAUSEA [None]
  - VOMITING [None]
  - RETCHING [None]
